FAERS Safety Report 23558495 (Version 1)
Quarter: 2024Q1

REPORT INFORMATION
  Report Type: Spontaneous
  Country: US (occurrence: US)
  Receive Date: 20240223
  Receipt Date: 20240223
  Transmission Date: 20240410
  Serious: No
  Sender: FDA-Public Use
  Company Number: US-DRL-USA-LIT/USA/24/0003007

PATIENT
  Age: 60 Year
  Sex: Male

DRUGS (2)
  1. AMLODIPINE [Suspect]
     Active Substance: AMLODIPINE BESYLATE
     Indication: Hypertension
     Dosage: 5 MG
  2. AMLODIPINE [Suspect]
     Active Substance: AMLODIPINE BESYLATE
     Dosage: 10 MG

REACTIONS (1)
  - Gingival hypertrophy [Recovered/Resolved]
